FAERS Safety Report 16348961 (Version 2)
Quarter: 2019Q2

REPORT INFORMATION
  Report Type: Spontaneous
  Country: CA (occurrence: CA)
  Receive Date: 20190523
  Receipt Date: 20190626
  Transmission Date: 20190711
  Serious: Yes (Other)
  Sender: FDA-Public Use
  Company Number: CA-SHIRE-CA201916115

PATIENT

DRUGS (3)
  1. VYVANSE [Suspect]
     Active Substance: LISDEXAMFETAMINE DIMESYLATE
     Dosage: 120 MILLIGRAM
     Route: 065
  2. VYVANSE [Suspect]
     Active Substance: LISDEXAMFETAMINE DIMESYLATE
     Dosage: 60 MILLIGRAM
     Route: 065
  3. VYVANSE [Suspect]
     Active Substance: LISDEXAMFETAMINE DIMESYLATE
     Indication: PRODUCT USED FOR UNKNOWN INDICATION
     Dosage: 120 MILLIGRAM
     Route: 065

REACTIONS (30)
  - Sensitive skin [Unknown]
  - Agitation [Unknown]
  - Hallucination [Unknown]
  - Skin lesion [Unknown]
  - Suicide attempt [Unknown]
  - Heart rate irregular [Unknown]
  - Dyskinesia [Unknown]
  - Abnormal behaviour [Unknown]
  - Fatigue [Unknown]
  - Product use issue [Unknown]
  - Muscle twitching [Unknown]
  - Mental status changes [Unknown]
  - Thinking abnormal [Unknown]
  - Skin discolouration [Unknown]
  - Sexual dysfunction [Unknown]
  - Palpitations [Unknown]
  - Mood swings [Unknown]
  - Hypoaesthesia [Unknown]
  - Pain in extremity [Unknown]
  - Libido disorder [Unknown]
  - Joint swelling [Unknown]
  - Vision blurred [Unknown]
  - Suicidal ideation [Unknown]
  - Mood altered [Unknown]
  - Depression [Unknown]
  - Inappropriate schedule of product administration [Unknown]
  - Peripheral swelling [Unknown]
  - Tic [Unknown]
  - Aggression [Unknown]
  - Tremor [Unknown]
